FAERS Safety Report 8098333-3 (Version None)
Quarter: 2012Q1

REPORT INFORMATION
  Report Type: 
  Country: None (occurrence: None)
  Receive Date: 20120131
  Receipt Date: 20120117
  Transmission Date: 20120608
  Serious: Yes (Hospitalization, Other)
  Sender: FDA-Public Use
  Company Number: FR-CELGENEUS-056-21880-11123328

PATIENT
  Sex: Male
  Weight: 50 kg

DRUGS (8)
  1. REVLIMID [Suspect]
     Dosage: 25 MILLIGRAM
     Route: 048
     Dates: end: 20111208
  2. RITUXIMAB [Suspect]
     Indication: B-CELL LYMPHOMA
     Dosage: 655 MILLIGRAM
     Route: 041
     Dates: start: 20111117
  3. REVLIMID [Suspect]
     Dosage: 25 MILLIGRAM
     Route: 048
     Dates: start: 20111215, end: 20111222
  4. REVLIMID [Suspect]
     Indication: B-CELL LYMPHOMA
     Dosage: 25 MILLIGRAM
     Route: 048
     Dates: start: 20111117, end: 20111130
  5. PREDNISOLONE [Suspect]
     Indication: B-CELL LYMPHOMA
     Dosage: 70 MILLIGRAM
     Dates: start: 20111117
  6. CYCLOPHOSPHAMIDE [Suspect]
     Indication: B-CELL LYMPHOMA
     Dosage: 1312.5 MILLIGRAM
     Route: 041
     Dates: start: 20111117
  7. VINCRISTINE [Suspect]
     Indication: B-CELL LYMPHOMA
     Dosage: 2 MILLIGRAM
     Route: 041
     Dates: start: 20111117
  8. DOXORUBICIN HCL [Suspect]
     Indication: B-CELL LYMPHOMA
     Dosage: 88 MILLIGRAM
     Route: 041
     Dates: start: 20111117

REACTIONS (6)
  - WEIGHT DECREASED [None]
  - PANCREATIC CARCINOMA [None]
  - LUNG INFECTION [None]
  - GENERAL PHYSICAL HEALTH DETERIORATION [None]
  - FOOD INTOLERANCE [None]
  - INFECTION [None]
